FAERS Safety Report 7008652-7 (Version None)
Quarter: 2010Q3

REPORT INFORMATION
  Report Type: 
  Country: None (occurrence: None)
  Receive Date: 20100921
  Receipt Date: 20100903
  Transmission Date: 20110219
  Serious: Yes (Other)
  Sender: FDA-Public Use
  Company Number: 2010003135

PATIENT
  Age: 72 Year
  Sex: Female

DRUGS (1)
  1. TARCEVA [Suspect]
     Indication: LUNG NEOPLASM MALIGNANT
     Dosage: (150 MG,QD),ORAL
     Route: 048
     Dates: start: 20100401, end: 20100727

REACTIONS (5)
  - ERYTHEMA [None]
  - LUNG NEOPLASM MALIGNANT [None]
  - MALIGNANT NEOPLASM PROGRESSION [None]
  - SKIN FISSURES [None]
  - VULVAL DISORDER [None]
